FAERS Safety Report 7291123-0 (Version None)
Quarter: 2011Q1

REPORT INFORMATION
  Report Type: 
  Country: None (occurrence: None)
  Receive Date: 20110214
  Receipt Date: 20110203
  Transmission Date: 20110831
  Serious: Yes (Other)
  Sender: FDA-Public Use
  Company Number: US-JNJFOC-20110103629

PATIENT
  Sex: Male
  Weight: 96.62 kg

DRUGS (5)
  1. REMICADE [Suspect]
     Route: 042
  2. JANUVIA [Concomitant]
     Indication: DIABETES MELLITUS
  3. REMICADE [Suspect]
     Indication: ANKYLOSING SPONDYLITIS
     Route: 042
  4. METFORMIN [Concomitant]
     Indication: DIABETES MELLITUS
  5. BENICAR [Concomitant]
     Indication: DIABETES MELLITUS

REACTIONS (1)
  - PULMONARY TUBERCULOSIS [None]
